FAERS Safety Report 14321554 (Version 1)
Quarter: 2017Q4

REPORT INFORMATION
  Report Type: Spontaneous
  Country: ES (occurrence: ES)
  Receive Date: 20171223
  Receipt Date: 20171223
  Transmission Date: 20180321
  Serious: Yes (Death, Other)
  Sender: FDA-Public Use
  Company Number: ES-MYLANLABS-2017M1080812

PATIENT
  Age: 86 Year
  Sex: Male
  Weight: 47 kg

DRUGS (6)
  1. THEOPHYLLINE [Interacting]
     Active Substance: THEOPHYLLINE ANHYDROUS
     Indication: PRODUCT USED FOR UNKNOWN INDICATION
     Dosage: 150 MG, BID (2/DAY)
  2. DOMPERIDONE [Concomitant]
     Active Substance: DOMPERIDONE
     Indication: PRODUCT USED FOR UNKNOWN INDICATION
     Dosage: 10 ML, TID (3/DAY)
  3. AMIODARONE [Suspect]
     Active Substance: AMIODARONE
     Indication: PRODUCT USED FOR UNKNOWN INDICATION
     Dosage: 600 MG/24 H
  4. DIGOXINE [Concomitant]
     Active Substance: DIGOXIN
     Indication: PRODUCT USED FOR UNKNOWN INDICATION
     Dosage: 0.25 MG 5 DAYS/WEEK
  5. THEOPHYLLINE [Interacting]
     Active Substance: THEOPHYLLINE ANHYDROUS
     Dosage: 300 MG, BID (2/DAY)
  6. FUROSEMIDE. [Concomitant]
     Active Substance: FUROSEMIDE
     Indication: PRODUCT USED FOR UNKNOWN INDICATION
     Dosage: 40 MG, QD (1/DAY)

REACTIONS (9)
  - Tremor [Recovered/Resolved]
  - Cardiac failure congestive [Unknown]
  - Nervousness [Recovered/Resolved]
  - Tachycardia [Recovered/Resolved]
  - Nausea [Recovering/Resolving]
  - Cardio-respiratory arrest [Fatal]
  - Drug interaction [Unknown]
  - Drug level above therapeutic [Recovered/Resolved]
  - Toxicity to various agents [Recovered/Resolved]
